FAERS Safety Report 14963998 (Version 1)
Quarter: 2018Q2

REPORT INFORMATION
  Report Type: Spontaneous
  Country: US (occurrence: US)
  Receive Date: 20180601
  Receipt Date: 20180601
  Transmission Date: 20180711
  Serious: No
  Sender: FDA-Public Use
  Company Number: US-MYLANLABS-2018M1030756

PATIENT
  Sex: Female
  Weight: 47 kg

DRUGS (1)
  1. ESTRADIOL VAGINAL CREAM USP [Suspect]
     Active Substance: ESTRADIOL
     Dosage: 0.5 G, BID
     Route: 067
     Dates: start: 20180227

REACTIONS (5)
  - No adverse event [Unknown]
  - Drug dose omission [Unknown]
  - Underdose [Unknown]
  - Product packaging quantity issue [Unknown]
  - Product use complaint [Unknown]
